FAERS Safety Report 5279675-3 (Version None)
Quarter: 2007Q1

REPORT INFORMATION
  Report Type: 
  Country: None (occurrence: None)
  Receive Date: 20070323
  Receipt Date: 20070316
  Transmission Date: 20070707
  Serious: Yes (Other)
  Sender: FDA-Public Use
  Company Number: 238639

PATIENT
  Sex: Female

DRUGS (8)
  1. XOLAIR [Suspect]
     Indication: ASTHMA
     Dosage: 1 VIAL, 1/MONTH
     Dates: start: 20040914, end: 20060117
  2. XOLAIR [Suspect]
  3. ADVAIR DISKUS 100/50 [Concomitant]
  4. ALLEGRA [Concomitant]
  5. SINGULAIR [Concomitant]
  6. COZAAR [Concomitant]
  7. BENADRYL [Concomitant]
  8. XANAX [Concomitant]

REACTIONS (1)
  - PATELLA FRACTURE [None]
